FAERS Safety Report 9186655 (Version 1)
Quarter: 2013Q1

REPORT INFORMATION
  Report Type: Spontaneous
  Country: US (occurrence: US)
  Receive Date: 20130325
  Receipt Date: 20130325
  Transmission Date: 20140127
  Serious: No
  Sender: FDA-Public Use
  Company Number: US-GLAXOSMITHKLINE-A0945627A

PATIENT
  Age: 83 Year
  Sex: Female

DRUGS (2)
  1. RYTHMOL SR [Suspect]
     Indication: ATRIAL FIBRILLATION
     Dosage: 225MG THREE TIMES PER DAY
     Route: 048
     Dates: start: 2003
  2. MIRALAX [Concomitant]

REACTIONS (5)
  - Pain [Recovered/Resolved]
  - Heart rate increased [Unknown]
  - Headache [Unknown]
  - Swelling face [Unknown]
  - Product quality issue [Unknown]
